FAERS Safety Report 22603958 (Version 1)
Quarter: 2023Q2

REPORT INFORMATION
  Report Type: Spontaneous
  Country: CA (occurrence: CA)
  Receive Date: 20230615
  Receipt Date: 20230615
  Transmission Date: 20230722
  Serious: Yes (Disabling, Other)
  Sender: FDA-Public Use
  Company Number: CA-JNJFOC-20230624344

PATIENT
  Age: 10 Year
  Sex: Male
  Weight: 26.332 kg

DRUGS (3)
  1. CONCERTA [Suspect]
     Active Substance: METHYLPHENIDATE HYDROCHLORIDE
     Indication: Attention deficit hyperactivity disorder
     Route: 048
  2. CONCERTA [Suspect]
     Active Substance: METHYLPHENIDATE HYDROCHLORIDE
     Route: 048
  3. MELATONIN [Concomitant]
     Active Substance: MELATONIN

REACTIONS (14)
  - Decreased interest [Not Recovered/Not Resolved]
  - Dysphemia [Not Recovered/Not Resolved]
  - Educational problem [Not Recovered/Not Resolved]
  - Pain in jaw [Not Recovered/Not Resolved]
  - Photopsia [Not Recovered/Not Resolved]
  - Thirst decreased [Not Recovered/Not Resolved]
  - Decreased appetite [Not Recovered/Not Resolved]
  - Anxiety [Not Recovered/Not Resolved]
  - Fatigue [Not Recovered/Not Resolved]
  - Headache [Not Recovered/Not Resolved]
  - Insomnia [Not Recovered/Not Resolved]
  - Nausea [Not Recovered/Not Resolved]
  - Tic [Not Recovered/Not Resolved]
  - Weight decreased [Not Recovered/Not Resolved]
